FAERS Safety Report 9145768 (Version 1)
Quarter: 2013Q1

REPORT INFORMATION
  Report Type: Spontaneous
  Country: US (occurrence: None)
  Receive Date: 20130227
  Receipt Date: 20130227
  Transmission Date: 20140127
  Serious: Yes (Life-Threatening)
  Sender: FDA-Public Use
  Company Number: None

PATIENT
  Sex: Female
  Weight: 86.18 kg

DRUGS (1)
  1. EVISTA [Suspect]
     Indication: ANTIOESTROGEN THERAPY
     Dosage: 60 MG ONCE A DAY
     Dates: start: 20120701, end: 20130101

REACTIONS (1)
  - Uterine cancer [None]
